FAERS Safety Report 5151600-5 (Version None)
Quarter: 2006Q4

REPORT INFORMATION
  Report Type: 
  Country: None (occurrence: None)
  Receive Date: 20061115
  Receipt Date: 20060207
  Transmission Date: 20070319
  Serious: No
  Sender: FDA-Public Use
  Company Number: US-BRISTOL-MYERS SQUIBB COMPANY-13274857

PATIENT
  Age: 30 Year
  Sex: Female
  Weight: 59 kg

DRUGS (2)
  1. SUSTIVA [Suspect]
     Indication: HIV INFECTION
     Dates: start: 20050201, end: 20060101
  2. COMBIVIR [Concomitant]

REACTIONS (1)
  - PREGNANCY [None]
